FAERS Safety Report 7350716-2 (Version None)
Quarter: 2011Q1

REPORT INFORMATION
  Report Type: 
  Country: None (occurrence: None)
  Receive Date: 20110303
  Receipt Date: 20110218
  Transmission Date: 20110831
  Serious: Yes (Hospitalization)
  Sender: FDA-Public Use
  Company Number: CH-004766

PATIENT
  Sex: Male

DRUGS (10)
  1. LEXOTANIL [Concomitant]
  2. CLEXANE [Concomitant]
  3. DAFALGAN [Concomitant]
  4. SERETIDE [Concomitant]
  5. NATRII CHLORIDUM [Concomitant]
  6. FIRMAGON [Suspect]
     Indication: PROSTATE CANCER
     Dosage: (240 MG 1X SUBCUTANEOUS)
     Route: 058
     Dates: start: 20110216, end: 20110216
  7. ATROVENT [Concomitant]
  8. ZOLPIDEM [Concomitant]
  9. MAGNESIOCARD [Concomitant]
  10. VENTOLIN [Concomitant]

REACTIONS (3)
  - INJECTION SITE INDURATION [None]
  - INJECTION SITE PAIN [None]
  - INJECTION SITE RASH [None]
